FAERS Safety Report 14804015 (Version 1)
Quarter: 2018Q2

REPORT INFORMATION
  Report Type: Spontaneous
  Country: US (occurrence: US)
  Receive Date: 20180425
  Receipt Date: 20180425
  Transmission Date: 20180711
  Serious: No
  Sender: FDA-Public Use
  Company Number: US-TEVA-766136ACC

PATIENT
  Age: 10 Year
  Sex: Male

DRUGS (1)
  1. CEFALEXIN [Suspect]
     Active Substance: CEPHALEXIN
     Indication: STREPTOCOCCAL INFECTION
     Dosage: 250 ML/5 ML
     Route: 048
     Dates: start: 20170501

REACTIONS (2)
  - Petechiae [Unknown]
  - Urticaria [Unknown]

NARRATIVE: CASE EVENT DATE: 20170502
